FAERS Safety Report 19043106 (Version 1)
Quarter: 2021Q1

REPORT INFORMATION
  Report Type: Spontaneous
  Country: US (occurrence: US)
  Receive Date: 20210322
  Receipt Date: 20210322
  Transmission Date: 20210420
  Serious: Yes (Hospitalization)
  Sender: FDA-Public Use
  Company Number: None

PATIENT
  Age: 84 Year
  Sex: Male

DRUGS (1)
  1. ERLEADA [Suspect]
     Active Substance: APALUTAMIDE
     Indication: PROSTATE CANCER
     Dosage: ?          OTHER DOSE:4 TABS;?
     Route: 048
     Dates: start: 20200602

REACTIONS (2)
  - Abdominal pain upper [None]
  - Therapy interrupted [None]

NARRATIVE: CASE EVENT DATE: 20210319
